FAERS Safety Report 5452734-8 (Version None)
Quarter: 2007Q3

REPORT INFORMATION
  Report Type: 
  Country: None (occurrence: None)
  Receive Date: 20070914
  Receipt Date: 20070913
  Transmission Date: 20080115
  Serious: Yes (Other)
  Sender: FDA-Public Use
  Company Number: A0681419A

PATIENT
  Age: 42 Year
  Sex: Female

DRUGS (2)
  1. ALLI [Suspect]
     Route: 048
     Dates: start: 20070906, end: 20070912
  2. SYNTHROID [Concomitant]

REACTIONS (4)
  - ARTHRALGIA [None]
  - GAIT DISTURBANCE [None]
  - JOINT SWELLING [None]
  - THROMBOSIS [None]
